FAERS Safety Report 23884554 (Version 1)
Quarter: 2024Q2

REPORT INFORMATION
  Report Type: Spontaneous
  Country: GB (occurrence: GB)
  Receive Date: 20240522
  Receipt Date: 20240522
  Transmission Date: 20240716
  Serious: Yes (Other)
  Sender: FDA-Public Use
  Company Number: None

PATIENT
  Age: 57 Year
  Sex: Male

DRUGS (17)
  1. TIGECYCLINE [Suspect]
     Active Substance: TIGECYCLINE
     Dosage: UNK
  2. SERTRALINE [Concomitant]
     Active Substance: SERTRALINE HYDROCHLORIDE
  3. SPIRONOLACTONE [Concomitant]
     Active Substance: SPIRONOLACTONE
  4. ATORVASTATIN [Concomitant]
     Active Substance: ATORVASTATIN
  5. LEVOTHYROXINE [Concomitant]
     Active Substance: LEVOTHYROXINE\LEVOTHYROXINE SODIUM
  6. BUMETANIDE [Concomitant]
     Active Substance: BUMETANIDE
  7. LANSOPRAZOLE [Concomitant]
     Active Substance: LANSOPRAZOLE
  8. ASPIRIN [Concomitant]
     Active Substance: ASPIRIN
  9. ZOPICLONE [Concomitant]
     Active Substance: ZOPICLONE
  10. MOXONIDINE [Concomitant]
     Active Substance: MOXONIDINE
  11. SEVELAMER [Concomitant]
     Active Substance: SEVELAMER
  12. CLOBETASOL [Concomitant]
     Active Substance: CLOBETASOL
  13. METOLAZONE [Concomitant]
     Active Substance: METOLAZONE
  14. NEBIVOLOL [Concomitant]
     Active Substance: NEBIVOLOL
  15. ALFACALCIDOL [Concomitant]
     Active Substance: ALFACALCIDOL
  16. DOXAZOSIN [Concomitant]
     Active Substance: DOXAZOSIN MESYLATE
  17. LOSARTAN [Concomitant]
     Active Substance: LOSARTAN

REACTIONS (3)
  - Liver function test increased [Recovered/Resolved]
  - Hypoglycaemia [Recovered/Resolved]
  - Thrombocytopenia [Recovered/Resolved]
